FAERS Safety Report 7503656-X (Version None)
Quarter: 2011Q2

REPORT INFORMATION
  Report Type: 
  Country: None (occurrence: None)
  Receive Date: 20110524
  Receipt Date: 20110524
  Transmission Date: 20111010
  Serious: Yes (Life-Threatening)
  Sender: FDA-Public Use
  Company Number: None

PATIENT
  Age: 64 Year
  Sex: Female
  Weight: 64.8644 kg

DRUGS (1)
  1. PROSED-DS  NONELISTED FERRING PHARMACEUTICALS [Suspect]
     Indication: CYSTITIS
     Dosage: 1 PILL 4X A DAY PO
     Route: 048
     Dates: start: 20110518, end: 20110519

REACTIONS (7)
  - NAUSEA [None]
  - UNEVALUABLE EVENT [None]
  - TREMOR [None]
  - COUGH [None]
  - DIZZINESS [None]
  - VOMITING [None]
  - HYPERSOMNIA [None]
